FAERS Safety Report 6851294-4 (Version None)
Quarter: 2010Q3

REPORT INFORMATION
  Report Type: 
  Country: None (occurrence: None)
  Receive Date: 20100717
  Receipt Date: 20080114
  Transmission Date: 20110219
  Serious: No
  Sender: FDA-Public Use
  Company Number: US-PFIZER INC-2008005184

PATIENT
  Sex: Male

DRUGS (2)
  1. CHANTIX [Suspect]
  2. ABILIFY [Interacting]

REACTIONS (2)
  - DRUG INTERACTION [None]
  - FATIGUE [None]
